FAERS Safety Report 12572099 (Version 1)
Quarter: 2016Q3

REPORT INFORMATION
  Report Type: Spontaneous
  Country: US (occurrence: US)
  Receive Date: 20160719
  Receipt Date: 20160719
  Transmission Date: 20161109
  Serious: Yes (Other)
  Sender: FDA-Public Use
  Company Number: US-BELCHER PHARMACEUTICALS, LLC-2016VTS00042

PATIENT
  Sex: Female

DRUGS (5)
  1. HYOSCYAMINE SULFATE SL [Suspect]
     Active Substance: HYOSCYAMINE SULFATE
     Dosage: 2 TABLETS, ONCE
     Route: 048
     Dates: start: 20160628, end: 20160628
  2. XANAX [Concomitant]
     Active Substance: ALPRAZOLAM
     Dosage: 0.5 MG, AS NEEDED
     Dates: start: 2005
  3. ^VITAMIN SUPPLEMENTS FOR OSTEOPOROSIS^ [Concomitant]
  4. RESTASIS [Concomitant]
     Active Substance: CYCLOSPORINE
     Dosage: UNK
     Dates: start: 2009
  5. LOVENOX [Concomitant]
     Active Substance: ENOXAPARIN SODIUM
     Dosage: 100 MG, 1X/DAY
     Dates: start: 2009

REACTIONS (11)
  - Confusional state [Recovered/Resolved]
  - Dizziness [Not Recovered/Not Resolved]
  - Speech disorder [Recovered/Resolved]
  - Feeling abnormal [None]
  - Musculoskeletal stiffness [Not Recovered/Not Resolved]
  - Haematoma [Unknown]
  - Contusion [Not Recovered/Not Resolved]
  - Swelling [Not Recovered/Not Resolved]
  - Hallucination, visual [None]
  - Hallucination [Recovered/Resolved]
  - Fall [Recovered/Resolved]

NARRATIVE: CASE EVENT DATE: 20160628
